FAERS Safety Report 4878106-2 (Version None)
Quarter: 2006Q1

REPORT INFORMATION
  Report Type: 
  Country: None (occurrence: None)
  Receive Date: 20060109
  Receipt Date: 20051222
  Transmission Date: 20060701
  Serious: Yes (Hospitalization)
  Sender: FDA-Public Use
  Company Number: CIO05020486

PATIENT
  Sex: Female

DRUGS (1)
  1. METAMUCIL-2 [Suspect]
     Dosage: 1 TBSP, 1 ONLY FOR 1 DAY, ORAL
     Route: 048
     Dates: start: 20051221, end: 20051221

REACTIONS (2)
  - ABDOMINAL PAIN UPPER [None]
  - COLONIC OBSTRUCTION [None]
